FAERS Safety Report 22341847 (Version 1)
Quarter: 2023Q2

REPORT INFORMATION
  Report Type: Report from Study
  Country: US (occurrence: None)
  Receive Date: 20230518
  Receipt Date: 20230518
  Transmission Date: 20230721
  Serious: Yes (Hospitalization, Other)
  Sender: FDA-Public Use
  Company Number: US-ROCHE-3349428

PATIENT

DRUGS (13)
  1. RITUXIMAB [Suspect]
     Active Substance: RITUXIMAB
     Indication: Burkitt^s lymphoma
     Dosage: NEXT SUBSEQUENT DOSES ON `16/MAY/2016, 6/JUN/2016, 27/JUN/2016, 18/JUL/2016, 8/AUG/2016
     Route: 065
     Dates: start: 20160425, end: 20160425
  2. PEGFILGRASTIM [Suspect]
     Active Substance: PEGFILGRASTIM
     Indication: Burkitt^s lymphoma
     Dosage: SUBSEQUENT DOSES OF 6MG ON 21/MAY/2016, 11/JUN/2016, 2/JUL/2016, 24/JUL/2016, 14/AUG/2016
     Route: 065
     Dates: start: 20160502, end: 20160502
  3. DOXORUBICIN [Suspect]
     Active Substance: DOXORUBICIN
     Indication: Burkitt^s lymphoma
     Dosage: NEXT DOSE OF 86MG ON 27/JUN/2016, 18/JUL/2016, 8/AUG/2016 AND 103.2 MG ON 16/MAY/2016 AND 6/JUN/2016
     Route: 065
     Dates: start: 20160425, end: 20160428
  4. ETOPOSIDE [Suspect]
     Active Substance: ETOPOSIDE
     Indication: Burkitt^s lymphoma
     Route: 065
     Dates: start: 20160425, end: 20160428
  5. ETOPOSIDE [Suspect]
     Active Substance: ETOPOSIDE
     Dosage: NEXT 516 MG DOSE ON 6/JUN/2016
     Route: 065
     Dates: start: 20160516, end: 20160520
  6. ETOPOSIDE [Suspect]
     Active Substance: ETOPOSIDE
     Dosage: NEXT DOSES ON 18/JUL/2016, 8-AUG-2016
     Route: 065
     Dates: start: 20160627, end: 20160701
  7. VINCRISTINE [Suspect]
     Active Substance: VINCRISTINE
     Indication: Burkitt^s lymphoma
     Dosage: NEXT SUBSEQUENT DOSES ON 16/MAY/2016, 6/JUN/2016. 27/JUN/2016, 18/JUL/2016, 8/AUG/2016
     Route: 065
     Dates: start: 20160425, end: 20160428
  8. CYCLOPHOSPHAMIDE [Suspect]
     Active Substance: CYCLOPHOSPHAMIDE
     Indication: Burkitt^s lymphoma
     Route: 065
     Dates: start: 20160429, end: 20160429
  9. CYCLOPHOSPHAMIDE [Suspect]
     Active Substance: CYCLOPHOSPHAMIDE
     Dosage: NEXT DOSE ON 10/JUN/2016
     Route: 065
     Dates: start: 20160520, end: 20160520
  10. CYCLOPHOSPHAMIDE [Suspect]
     Active Substance: CYCLOPHOSPHAMIDE
     Route: 065
     Dates: start: 20160701, end: 20160701
  11. CYCLOPHOSPHAMIDE [Suspect]
     Active Substance: CYCLOPHOSPHAMIDE
     Dosage: NEXT DOSES ON 12/AUG/2016
     Route: 065
     Dates: start: 20160722, end: 20160722
  12. PREDNISONE [Suspect]
     Active Substance: PREDNISONE
     Indication: Burkitt^s lymphoma
     Dosage: SUBSEQUENT DOSES ON 20/MAY/2016, 6/JUN/2016, 27/JUN/2016, 18/JUL/2016, 8/AUG/2016
     Route: 065
     Dates: start: 20160425, end: 20160430
  13. METHOTREXATE [Suspect]
     Active Substance: METHOTREXATE
     Indication: Burkitt^s lymphoma
     Dosage: SUBSEQUENT DOSES 12 MG ON 13/JUN/2016, 28/JUN/2016, 5/JUL/2016, 19/JUL/2016, 22/JUL/2016, 9/AUG/2016
     Route: 065
     Dates: start: 20160609

REACTIONS (5)
  - Hypotension [Recovered/Resolved]
  - Dehydration [Recovered/Resolved]
  - Stomatitis [Recovered/Resolved]
  - Platelet count decreased [Recovered/Resolved]
  - Oral pain [Recovered/Resolved]

NARRATIVE: CASE EVENT DATE: 20160619
